FAERS Safety Report 24015321 (Version 2)
Quarter: 2024Q3

REPORT INFORMATION
  Report Type: Spontaneous
  Country: CO (occurrence: CO)
  Receive Date: 20240626
  Receipt Date: 20240723
  Transmission Date: 20241017
  Serious: Yes (Death, Life-Threatening, Hospitalization, Other)
  Sender: BOEHRINGER INGELHEIM
  Company Number: CO-BoehringerIngelheim-2024-BI-036010

PATIENT
  Age: 58 Year
  Sex: Female
  Weight: 30 kg

DRUGS (1)
  1. NINTEDANIB [Suspect]
     Active Substance: NINTEDANIB
     Indication: Pulmonary fibrosis
     Route: 048

REACTIONS (1)
  - Idiopathic pulmonary fibrosis [Fatal]

NARRATIVE: CASE EVENT DATE: 20240621
